FAERS Safety Report 8521686-6 (Version None)
Quarter: 2012Q3

REPORT INFORMATION
  Report Type: 
  Country: None (occurrence: None)
  Receive Date: 20120719
  Receipt Date: 20120717
  Transmission Date: 20120928
  Serious: Yes (Other)
  Sender: FDA-Public Use
  Company Number: PHFR2012GB004020

PATIENT
  Age: 67 Year
  Sex: Male
  Weight: 75.4 kg

DRUGS (3)
  1. IMATINIB MESYLATE [Suspect]
     Dosage: UNK
     Route: 048
     Dates: end: 20120401
  2. DARBEPOETIN ALFA [Concomitant]
  3. NILOTINIB [Concomitant]
     Indication: CHRONIC MYELOID LEUKAEMIA

REACTIONS (1)
  - RENAL FAILURE CHRONIC [None]
